FAERS Safety Report 5602077-4 (Version None)
Quarter: 2008Q1

REPORT INFORMATION
  Report Type: 
  Country: None (occurrence: None)
  Receive Date: 20080122
  Receipt Date: 20080107
  Transmission Date: 20080703
  Serious: Yes (Hospitalization)
  Sender: FDA-Public Use
  Company Number: MEDI-0006396

PATIENT
  Sex: Female
  Weight: 2.75 kg

DRUGS (1)
  1. SYNAGIS [Suspect]
     Indication: ANTIVIRAL PROPHYLAXIS
     Dosage: INTRAMUSCULAR
     Route: 030
     Dates: start: 20071126, end: 20071126

REACTIONS (2)
  - DRUG INEFFECTIVE [None]
  - RESPIRATORY SYNCYTIAL VIRUS BRONCHIOLITIS [None]
